FAERS Safety Report 9381275 (Version 1)
Quarter: 2013Q3

REPORT INFORMATION
  Report Type: Spontaneous
  Country: US (occurrence: US)
  Receive Date: 20130703
  Receipt Date: 20130703
  Transmission Date: 20140515
  Serious: No
  Sender: FDA-Public Use
  Company Number: US-PFIZER INC-2013194462

PATIENT
  Age: 79 Year
  Sex: Male
  Weight: 66.21 kg

DRUGS (1)
  1. ADVIL [Suspect]
     Indication: BACK PAIN
     Dosage: 200 MG, ONE TABLET ALTERNATE DAY
     Route: 048
     Dates: start: 2013

REACTIONS (2)
  - Drug effect incomplete [Unknown]
  - Drug intolerance [Unknown]
